FAERS Safety Report 9220483 (Version 1)
Quarter: 2013Q1

REPORT INFORMATION
  Report Type: Spontaneous
  Country: US (occurrence: None)
  Receive Date: 20120831
  Receipt Date: 20120831
  Transmission Date: 20140127
  Serious: No
  Sender: FDA-Public Use
  Company Number: 1000031344

PATIENT
  Age: 88 Year
  Sex: Male

DRUGS (5)
  1. DALIRESP [Suspect]
     Indication: CHRONIC OBSTRUCTIVE PULMONARY DISEASE
     Dosage: 500 MCG (500 MCG, 1 IN 1 D), ORAL
     Route: 048
     Dates: start: 20120505, end: 20120531
  2. LISINOPRIL (LISINOPRIL) (LISINOPRIL) [Concomitant]
  3. OMEPRAZOLE (OMEPRAZOLE) (OMEPRAZOLE) [Concomitant]
  4. ASPIRIN (ACETYLSALICYLIC ACID) (ACETYLSALICYLIC ACID) [Concomitant]
  5. VITAMINS NOS (VITAMINS NOS) (VITAMINS NOS) [Concomitant]

REACTIONS (7)
  - Pyrexia [None]
  - Decreased appetite [None]
  - Nausea [None]
  - Tremor [None]
  - Back pain [None]
  - Muscle spasms [None]
  - Diarrhoea [None]
